FAERS Safety Report 4972639-6 (Version None)
Quarter: 2006Q1

REPORT INFORMATION
  Report Type: 
  Country: None (occurrence: None)
  Receive Date: 20060216
  Receipt Date: 20051216
  Transmission Date: 20060701
  Serious: Yes (Hospitalization)
  Sender: FDA-Public Use
  Company Number: 200512IM000842

PATIENT
  Age: 67 Year
  Sex: Male

DRUGS (1)
  1. INTERFERON GAMMA-1B [Suspect]
     Indication: IDIOPATHIC PULMONARY FIBROSIS
     Dosage: SUBCUTANEOUS
     Route: 058

REACTIONS (1)
  - PNEUMONIA [None]
